FAERS Safety Report 5238243-X (Version None)
Quarter: 2007Q1

REPORT INFORMATION
  Report Type: 
  Country: None (occurrence: None)
  Receive Date: 20070215
  Receipt Date: 20070209
  Transmission Date: 20070707
  Serious: Yes (Death, Life-Threatening, Hospitalization)
  Sender: FDA-Public Use
  Company Number: FR-AVENTIS-200612487FR

PATIENT
  Age: 54 Year
  Sex: Male
  Weight: 75 kg

DRUGS (8)
  1. TAXOTERE [Suspect]
     Route: 042
     Dates: start: 20060615, end: 20060615
  2. CISPLATIN [Suspect]
     Route: 042
     Dates: start: 20060615, end: 20060615
  3. CORTANCYL [Concomitant]
  4. RADIOTHERAPY [Concomitant]
  5. LOVENOX [Concomitant]
     Route: 058
  6. SKENAN [Concomitant]
     Route: 048
  7. MOPRAL [Concomitant]
     Indication: GASTRIC ULCER
     Route: 048
  8. PRAZEPAM [Concomitant]
     Indication: ANXIETY
     Route: 048

REACTIONS (2)
  - CHEST PAIN [None]
  - MYOCARDIAL INFARCTION [None]
